FAERS Safety Report 8124184-7 (Version None)
Quarter: 2012Q1

REPORT INFORMATION
  Report Type: 
  Country: None (occurrence: None)
  Receive Date: 20120209
  Receipt Date: 20120131
  Transmission Date: 20120608
  Serious: Yes (Hospitalization)
  Sender: FDA-Public Use
  Company Number: DE-ABBOTT-12P-062-0900319-00

PATIENT
  Sex: Male
  Weight: 90 kg

DRUGS (4)
  1. RAMIPRIL [Concomitant]
     Indication: PRODUCT USED FOR UNKNOWN INDICATION
     Dosage: 5 MG DAILY
  2. METAMIZOL [Concomitant]
     Indication: ANKYLOSING SPONDYLITIS
     Dosage: 2000 MG DAILY
     Route: 048
     Dates: start: 20110805
  3. DICLOFENAC [Concomitant]
     Indication: ANKYLOSING SPONDYLITIS
     Dosage: 75 MG DAILY
     Dates: end: 20111001
  4. HUMIRA [Suspect]
     Indication: ANKYLOSING SPONDYLITIS
     Route: 058
     Dates: start: 20110805

REACTIONS (3)
  - ARTHRITIS [None]
  - UPPER RESPIRATORY TRACT INFECTION [None]
  - EAR INFECTION [None]
